FAERS Safety Report 18378662 (Version 6)
Quarter: 2020Q4

REPORT INFORMATION
  Report Type: Report from Study
  Country: JP (occurrence: JP)
  Receive Date: 20201013
  Receipt Date: 20201215
  Transmission Date: 20210114
  Serious: Yes (Hospitalization, Other)
  Sender: FDA-Public Use
  Company Number: JP-ROCHE-2689753

PATIENT
  Age: 63 Year
  Sex: Male
  Weight: 57 kg

DRUGS (20)
  1. AZUNOL [Concomitant]
     Indication: SKIN EROSION
     Dosage: AS NEEDED, PROPER AMOUNT
     Route: 061
     Dates: start: 20190823
  2. SATRALIZUMAB. [Suspect]
     Active Substance: SATRALIZUMAB
     Indication: NEUROMYELITIS OPTICA SPECTRUM DISORDER
     Route: 058
     Dates: start: 20191112, end: 202009
  3. FERROUS CITRATE [Concomitant]
     Active Substance: FERROUS CITRATE
     Indication: IRON DEFICIENCY ANAEMIA
     Route: 048
     Dates: start: 20191112, end: 20200928
  4. BAKTAR [Concomitant]
     Active Substance: SULFAMETHOXAZOLE\TRIMETHOPRIM
     Indication: PROPHYLAXIS URINARY TRACT INFECTION
     Route: 048
     Dates: start: 2016, end: 20200928
  5. CRESTOR OD [Concomitant]
     Active Substance: ROSUVASTATIN CALCIUM
     Indication: HYPERLIPIDAEMIA
     Route: 048
     Dates: start: 2014, end: 20200928
  6. PROSTANDIN [Concomitant]
     Indication: DECUBITUS ULCER
     Dosage: AS NEEDED, PROPER AMOUNT
     Route: 061
     Dates: start: 2014
  7. TERBINAFINE. [Concomitant]
     Active Substance: TERBINAFINE
     Indication: DERMATITIS
     Route: 048
     Dates: start: 20200401, end: 20200928
  8. UBRETID [Concomitant]
     Active Substance: DISTIGMINE BROMIDE
     Indication: BENIGN PROSTATIC HYPERPLASIA
     Route: 048
     Dates: start: 20190426, end: 20200928
  9. AZANIN [Concomitant]
     Active Substance: AZATHIOPRINE
     Indication: NEUROMYELITIS OPTICA SPECTRUM DISORDER
     Route: 048
     Dates: start: 20200111, end: 20200928
  10. ANTEBATE [Concomitant]
     Active Substance: BETAMETHASONE DIPROPIONATE
     Indication: URTICARIA
     Route: 061
     Dates: start: 20200520
  11. EQUA [Concomitant]
     Active Substance: VILDAGLIPTIN
     Indication: DIABETES MELLITUS
     Route: 048
     Dates: start: 20170710, end: 20200928
  12. LOCOID [Concomitant]
     Active Substance: HYDROCORTISONE BUTYRATE
     Indication: DERMATITIS
     Route: 061
     Dates: start: 20200401
  13. GABALON [Concomitant]
     Active Substance: BACLOFEN
     Indication: PARALYSIS
     Route: 048
     Dates: start: 20180921, end: 20200928
  14. LYRICA [Concomitant]
     Active Substance: PREGABALIN
     Indication: NEURALGIA
     Route: 048
     Dates: start: 2014, end: 20200928
  15. MOHRUS [Concomitant]
     Active Substance: KETOPROFEN
     Indication: NEUROMYELITIS OPTICA SPECTRUM DISORDER
     Dosage: AS NEEDED, PROPER AMOUNT
     Route: 061
     Dates: start: 2016
  16. PREDONINE [Concomitant]
     Active Substance: PREDNISOLONE
     Indication: NEUROMYELITIS OPTICA SPECTRUM DISORDER
     Route: 048
     Dates: start: 20200904, end: 20200928
  17. MITIGLINIDE CALCIUM [Concomitant]
     Active Substance: MITIGLINIDE CALCIUM ANHYDROUS
     Indication: DIABETES MELLITUS
     Route: 048
     Dates: start: 20180620, end: 20200928
  18. RIVOTRIL [Concomitant]
     Active Substance: CLONAZEPAM
     Indication: NEURALGIA
     Route: 048
     Dates: start: 2014, end: 20200928
  19. ACTONEL [Concomitant]
     Active Substance: RISEDRONATE SODIUM
     Indication: OSTEOPOROSIS PROPHYLAXIS
     Route: 048
     Dates: start: 2016, end: 20200928
  20. NEXIUM [Concomitant]
     Active Substance: ESOMEPRAZOLE MAGNESIUM
     Indication: GASTRITIS PROPHYLAXIS
     Route: 048
     Dates: start: 2014

REACTIONS (2)
  - Septic shock [Recovered/Resolved]
  - Pneumonia [Recovered/Resolved]

NARRATIVE: CASE EVENT DATE: 20200927
